FAERS Safety Report 6783234-0 (Version None)
Quarter: 2010Q2

REPORT INFORMATION
  Report Type: 
  Country: None (occurrence: None)
  Receive Date: 20100622
  Receipt Date: 20100618
  Transmission Date: 20101027
  Serious: Yes (Death)
  Sender: FDA-Public Use
  Company Number: JP-JNJFOC-20100404141

PATIENT
  Age: 91 Year
  Sex: Male

DRUGS (2)
  1. ITRIZOLE [Suspect]
     Indication: ASPERGILLOSIS
     Route: 048
  2. MICAFUNGIN SODIUM [Suspect]
     Indication: DRUG USE FOR UNKNOWN INDICATION
     Route: 065

REACTIONS (2)
  - DIARRHOEA [None]
  - DISEASE PROGRESSION [None]
